FAERS Safety Report 24125015 (Version 1)
Quarter: 2024Q3

REPORT INFORMATION
  Report Type: Report from Study
  Country: US (occurrence: US)
  Receive Date: 20240723
  Receipt Date: 20240723
  Transmission Date: 20241017
  Serious: Yes (Other)
  Sender: ABBVIE
  Company Number: US-ABBVIE-5845491

PATIENT
  Age: 48 Year
  Sex: Female

DRUGS (1)
  1. HUMIRA [Suspect]
     Active Substance: ADALIMUMAB
     Indication: Hidradenitis
     Route: 058
     Dates: start: 20240712

REACTIONS (3)
  - Loss of consciousness [Recovered/Resolved]
  - Nervousness [Recovering/Resolving]
  - Migraine [Recovering/Resolving]

NARRATIVE: CASE EVENT DATE: 20240701
